FAERS Safety Report 5879986-4 (Version None)
Quarter: 2008Q3

REPORT INFORMATION
  Report Type: 
  Country: None (occurrence: None)
  Receive Date: 20080910
  Receipt Date: 20080910
  Transmission Date: 20090109
  Serious: Yes (Hospitalization)
  Sender: FDA-Public Use
  Company Number: None

PATIENT
  Sex: Female
  Weight: 68.0396 kg

DRUGS (1)
  1. CIPRO [Suspect]
     Indication: DIVERTICULITIS
     Dosage: 750 MG 1 Q 12 HOURS PO
     Route: 048
     Dates: start: 20080710, end: 20080714

REACTIONS (3)
  - CLOSTRIDIUM DIFFICILE COLITIS [None]
  - COLON INJURY [None]
  - CONDITION AGGRAVATED [None]
